FAERS Safety Report 9334047 (Version 1)
Quarter: 2013Q2

REPORT INFORMATION
  Report Type: Spontaneous
  Country: GB (occurrence: None)
  Receive Date: 20130604
  Receipt Date: 20130604
  Transmission Date: 20140414
  Serious: Yes (Hospitalization, Disabling, Other)
  Sender: FDA-Public Use
  Company Number: AUR-APL-2013-04526

PATIENT
  Age: 58 Year
  Sex: Male
  Weight: 77 kg

DRUGS (2)
  1. GABAPENTIN (GABAPENTIN) [Suspect]
     Indication: NEURALGIA
     Dates: start: 201111, end: 201302
  2. PREGABALIN (PREGABALIN) [Suspect]
     Indication: DIABETIC NEUROPATHY
     Dates: start: 200802, end: 201002

REACTIONS (1)
  - Diabetic foot [None]
